FAERS Safety Report 14106349 (Version 1)
Quarter: 2017Q4

REPORT INFORMATION
  Report Type: Spontaneous
  Country: SE (occurrence: SE)
  Receive Date: 20171019
  Receipt Date: 20171019
  Transmission Date: 20180321
  Serious: Yes (Other)
  Sender: FDA-Public Use
  Company Number: SE-ORION CORPORATION ORION PHARMA-17_00002668

PATIENT
  Sex: Male

DRUGS (2)
  1. PLAQUENIL [Concomitant]
     Active Substance: HYDROXYCHLOROQUINE SULFATE
     Route: 065
  2. METHOTREXATE ORION [Suspect]
     Active Substance: METHOTREXATE
     Indication: ARTHRITIS
     Dosage: STRENGTH: 2.5 MG
     Route: 048
     Dates: end: 201709

REACTIONS (1)
  - Depressive symptom [Unknown]
